FAERS Safety Report 17795643 (Version 1)
Quarter: 2020Q2

REPORT INFORMATION
  Report Type: Spontaneous
  Country: CN (occurrence: CN)
  Receive Date: 20200516
  Receipt Date: 20200516
  Transmission Date: 20200714
  Serious: Yes (Other)
  Sender: FDA-Public Use
  Company Number: CN-ROCHE-2600293

PATIENT
  Age: 53 Year
  Sex: Male

DRUGS (7)
  1. ETOPOSIDE. [Concomitant]
     Active Substance: ETOPOSIDE
     Indication: GASTRIC CANCER
     Route: 065
     Dates: start: 20190517
  2. HERCEPTIN [Suspect]
     Active Substance: TRASTUZUMAB
     Indication: GASTRIC CANCER
     Route: 065
     Dates: start: 20181115
  3. CATEQUENTINIB. [Concomitant]
     Active Substance: CATEQUENTINIB
     Indication: GASTRIC CANCER
     Route: 065
     Dates: start: 20190112
  4. APATINIB [Concomitant]
     Active Substance: APATINIB
     Indication: GASTRIC CANCER
     Route: 065
     Dates: start: 20180802
  5. DOCETAXEL. [Concomitant]
     Active Substance: DOCETAXEL
     Indication: GASTRIC CANCER
     Route: 065
     Dates: start: 20181115
  6. APATINIB [Concomitant]
     Active Substance: APATINIB
     Route: 065
     Dates: start: 20181115
  7. XELODA [Concomitant]
     Active Substance: CAPECITABINE
     Indication: GASTRIC CANCER
     Route: 048
     Dates: start: 20191026

REACTIONS (1)
  - Bone marrow failure [Unknown]
